FAERS Safety Report 8972249 (Version 1)
Quarter: 2012Q4

REPORT INFORMATION
  Report Type: 
  Country: CA (occurrence: CA)
  Receive Date: 20121219
  Receipt Date: 20121219
  Transmission Date: 20130627
  Serious: Yes (Other)
  Sender: FDA-Public Use
  Company Number: CA-AMGEN-CANSP2012080727

PATIENT
  Age: 84 Year
  Sex: Female
  Weight: 40.91 kg

DRUGS (1)
  1. PROLIA [Suspect]
     Indication: OSTEOPOROSIS
     Dosage: UNK
     Dates: start: 20110504

REACTIONS (3)
  - Osteonecrosis of jaw [Unknown]
  - Suture related complication [Not Recovered/Not Resolved]
  - Pain [Not Recovered/Not Resolved]
